FAERS Safety Report 16291520 (Version 1)
Quarter: 2019Q2

REPORT INFORMATION
  Report Type: Spontaneous
  Country: US (occurrence: US)
  Receive Date: 20190509
  Receipt Date: 20190509
  Transmission Date: 20190711
  Serious: No
  Sender: FDA-Public Use
  Company Number: US-JNJFOC-20190439475

PATIENT
  Age: 35 Year
  Sex: Female
  Weight: 83.92 kg

DRUGS (2)
  1. WOMENS ROGAINE UNSCENTED [Suspect]
     Active Substance: MINOXIDIL
     Route: 061
  2. WOMENS ROGAINE UNSCENTED [Suspect]
     Active Substance: MINOXIDIL
     Indication: ALOPECIA
     Dosage: HALF A CAPFUL EVERY DAY 1 TIME A DAY
     Route: 061
     Dates: start: 20190124, end: 20190413

REACTIONS (1)
  - Skin irritation [Recovered/Resolved]

NARRATIVE: CASE EVENT DATE: 20190124
